FAERS Safety Report 13403953 (Version 3)
Quarter: 2019Q4

REPORT INFORMATION
  Report Type: Spontaneous
  Country: JP (occurrence: JP)
  Receive Date: 20170405
  Receipt Date: 20191224
  Transmission Date: 20200122
  Serious: Yes (Death)
  Sender: FDA-Public Use
  Company Number: JP-BAXTER-2017BAX013944

PATIENT
  Age: 65 Year
  Sex: Male

DRUGS (50)
  1. ENDOXAN 1G [Suspect]
     Active Substance: CYCLOPHOSPHAMIDE
     Indication: RESPIRATORY DISORDER
     Route: 065
     Dates: start: 20170222
  2. RECOMODULIN [Suspect]
     Active Substance: THROMBOMODULIN ALFA
     Indication: PRODUCT USED FOR UNKNOWN INDICATION
     Dosage: 25,600 UNITS
     Route: 065
     Dates: start: 20170224, end: 20170302
  3. NOVORAPID [Concomitant]
     Active Substance: INSULIN ASPART
     Indication: PRODUCT USED FOR UNKNOWN INDICATION
     Route: 065
  4. KYTRIL [Concomitant]
     Active Substance: GRANISETRON HYDROCHLORIDE
     Indication: PRODUCT USED FOR UNKNOWN INDICATION
     Route: 041
  5. LASIX [Concomitant]
     Active Substance: FUROSEMIDE
     Indication: PRODUCT USED FOR UNKNOWN INDICATION
     Route: 065
  6. MIYA-BM [Concomitant]
     Active Substance: CLOSTRIDIUM BUTYRICUM SPORES STRAIN M-55
     Indication: PRODUCT USED FOR UNKNOWN INDICATION
     Route: 048
  7. CELLTOP 100 MG/5 ML, SOLUTION INJECTABLE POUR PERFUSION [Suspect]
     Active Substance: ETOPOSIDE
     Indication: MALIGNANT MEDIASTINAL NEOPLASM
     Dosage: DAYS 1-5 1ST COURSE OF BEP
     Route: 041
     Dates: start: 20161128, end: 20161202
  8. BLEOMYCIN [Suspect]
     Active Substance: BLEOMYCIN SULFATE
     Dosage: 1ST DAY OF 3RD COURSE OF BEP
     Route: 041
     Dates: start: 20170109, end: 20170109
  9. SOL-MELCORT [Suspect]
     Active Substance: METHYLPREDNISOLONE SODIUM SUCCINATE
     Indication: INTERSTITIAL LUNG DISEASE
     Route: 065
     Dates: start: 201702, end: 20170220
  10. MORPHINE [Suspect]
     Active Substance: MORPHINE
     Indication: DYSPNOEA
     Route: 040
     Dates: start: 20170304
  11. MAGNESIUM OXIDE. [Concomitant]
     Active Substance: MAGNESIUM OXIDE
     Indication: PRODUCT USED FOR UNKNOWN INDICATION
     Route: 048
  12. CELLTOP 100 MG/5 ML, SOLUTION INJECTABLE POUR PERFUSION [Suspect]
     Active Substance: ETOPOSIDE
     Dosage: DAYS 1-5 4TH COURSE OF BEP
     Route: 041
     Dates: start: 20170130, end: 20170203
  13. BLEOMYCIN [Suspect]
     Active Substance: BLEOMYCIN SULFATE
     Dosage: 8TH DAY OF 4TH COURSE OF BEP
     Route: 041
     Dates: start: 20170206, end: 20170206
  14. BLEOMYCIN [Suspect]
     Active Substance: BLEOMYCIN SULFATE
     Dosage: 15TH DAY OF 4TH COURSE OF BEP
     Route: 041
     Dates: start: 20170213, end: 20170213
  15. SOL-MELCORT [Suspect]
     Active Substance: METHYLPREDNISOLONE SODIUM SUCCINATE
     Route: 065
     Dates: start: 20170221
  16. SOL-MELCORT [Suspect]
     Active Substance: METHYLPREDNISOLONE SODIUM SUCCINATE
     Dosage: DOSE INCREASED
     Route: 065
     Dates: start: 20170228
  17. CRAVIT [Suspect]
     Active Substance: LEVOFLOXACIN
     Indication: PRODUCT USED FOR UNKNOWN INDICATION
     Route: 065
     Dates: start: 201702, end: 20170224
  18. ELASPOL [Suspect]
     Active Substance: SIVELESTAT SODIUM
     Indication: PRODUCT USED FOR UNKNOWN INDICATION
     Route: 065
     Dates: start: 20170301
  19. BROTIZOLAM [Concomitant]
     Active Substance: BROTIZOLAM
     Indication: PRODUCT USED FOR UNKNOWN INDICATION
     Route: 048
  20. ENDOXAN 1G [Suspect]
     Active Substance: CYCLOPHOSPHAMIDE
     Indication: CONDITION AGGRAVATED
     Route: 065
     Dates: start: 20170302
  21. BLEOMYCIN [Suspect]
     Active Substance: BLEOMYCIN SULFATE
     Dosage: 1 ST DAY OF 2ND COURSE OF BEP
     Route: 041
     Dates: start: 20161219, end: 20161219
  22. BLEOMYCIN [Suspect]
     Active Substance: BLEOMYCIN SULFATE
     Dosage: 15TH DAY OF 3RD COURSE OF BEP
     Route: 041
     Dates: start: 20170123, end: 20170123
  23. BLEOMYCIN [Suspect]
     Active Substance: BLEOMYCIN SULFATE
     Dosage: 1ST DAY OF 4TH COURSE OF BEP
     Route: 041
     Dates: start: 20170130, end: 20170130
  24. CISPLATIN. [Suspect]
     Active Substance: CISPLATIN
     Indication: MALIGNANT MEDIASTINAL NEOPLASM
     Dosage: DAYS 1-5 1ST COURSE OF BEP
     Route: 041
     Dates: start: 20161128, end: 20161202
  25. CISPLATIN. [Suspect]
     Active Substance: CISPLATIN
     Dosage: DAYS 1-5, 4TH COURSE OF BEP
     Route: 041
     Dates: start: 20170130, end: 20170203
  26. SENNOSIDE A/B CALCIUM [Concomitant]
     Indication: PRODUCT USED FOR UNKNOWN INDICATION
     Route: 048
  27. ENSURE H [Concomitant]
     Active Substance: CARBOHYDRATES\FATTY ACIDS\MINERALS\PROTEIN\VITAMINS
     Indication: PRODUCT USED FOR UNKNOWN INDICATION
     Route: 048
  28. UROMITEXAN 400 MG [Suspect]
     Active Substance: MESNA
     Indication: PRODUCT USED FOR UNKNOWN INDICATION
     Route: 042
  29. BLEOMYCIN [Suspect]
     Active Substance: BLEOMYCIN SULFATE
     Indication: CHORIOCARCINOMA
     Dosage: 30MG/BODY 8 TH DAY OF 1ST COURSE OF BEP
     Route: 041
     Dates: start: 20161205, end: 20161205
  30. CISPLATIN. [Suspect]
     Active Substance: CISPLATIN
     Indication: CHORIOCARCINOMA
     Dosage: DAYS 1-5, 2ND COURSE OF BEP
     Route: 041
     Dates: start: 20161219, end: 20161223
  31. SOL-MELCORT [Suspect]
     Active Substance: METHYLPREDNISOLONE SODIUM SUCCINATE
     Dosage: DOSE REDUCED
     Route: 065
     Dates: start: 20170224
  32. CELLTOP 100 MG/5 ML, SOLUTION INJECTABLE POUR PERFUSION [Suspect]
     Active Substance: ETOPOSIDE
     Indication: CHORIOCARCINOMA
     Dosage: DAYS 1-5, 2ND COURSE OF BEP
     Route: 041
     Dates: start: 20161219, end: 20161223
  33. BLEOMYCIN [Suspect]
     Active Substance: BLEOMYCIN SULFATE
     Indication: MALIGNANT MEDIASTINAL NEOPLASM
     Dosage: 30MG/BODY 1 ST DAY 1ST COURSE OF BEP
     Route: 041
     Dates: start: 20161128, end: 20161128
  34. MIDAZOLAM [Suspect]
     Active Substance: MIDAZOLAM HYDROCHLORIDE
     Indication: SEDATIVE THERAPY
     Route: 065
     Dates: start: 20170304
  35. CELLTOP 100 MG/5 ML, SOLUTION INJECTABLE POUR PERFUSION [Suspect]
     Active Substance: ETOPOSIDE
     Dosage: DAYS 1-5 3RD COURSE OF BEP
     Route: 041
     Dates: start: 20170109, end: 20170113
  36. BLEOMYCIN [Suspect]
     Active Substance: BLEOMYCIN SULFATE
     Dosage: 30MG/BODY 15 TH DAY OF 1ST COURSE OF BEP
     Route: 041
     Dates: start: 20161215, end: 20161215
  37. BLEOMYCIN [Suspect]
     Active Substance: BLEOMYCIN SULFATE
     Dosage: 8 TH DAY OF 2ND COURSE OF BEP
     Route: 041
     Dates: start: 20161226, end: 20161226
  38. BLEOMYCIN [Suspect]
     Active Substance: BLEOMYCIN SULFATE
     Dosage: 8TH DAY OF 3RD COURSE OF BEP
     Route: 041
     Dates: start: 20170116, end: 20170116
  39. CISPLATIN. [Suspect]
     Active Substance: CISPLATIN
     Dosage: DAYS 1-5, 3RD COURSE OF BEP
     Route: 041
     Dates: start: 20170109, end: 20170113
  40. SOL-MELCORT [Suspect]
     Active Substance: METHYLPREDNISOLONE SODIUM SUCCINATE
     Dosage: DOSE REDUCED
     Route: 065
     Dates: start: 20170303
  41. FINIBAX [Suspect]
     Active Substance: DORIPENEM MONOHYDRATE
     Indication: PRODUCT USED FOR UNKNOWN INDICATION
     Route: 065
     Dates: start: 201702, end: 20170224
  42. PREDONINE [Suspect]
     Active Substance: PREDNISOLONE
     Indication: INTERSTITIAL LUNG DISEASE
     Route: 065
     Dates: start: 20170220
  43. DAIPHEN [Suspect]
     Active Substance: SULFAMETHOXAZOLE\TRIMETHOPRIM
     Indication: PRODUCT USED FOR UNKNOWN INDICATION
     Route: 065
     Dates: start: 20170223
  44. NEORAL [Suspect]
     Active Substance: CYCLOSPORINE
     Indication: PRODUCT USED FOR UNKNOWN INDICATION
     Route: 065
     Dates: start: 20170224
  45. MEYLON [Concomitant]
     Active Substance: SODIUM BICARBONATE
     Indication: PRODUCT USED FOR UNKNOWN INDICATION
     Route: 042
  46. TAKECAB [Concomitant]
     Active Substance: VONOPRAZAN FUMURATE
     Indication: PRODUCT USED FOR UNKNOWN INDICATION
     Route: 048
  47. BLEOMYCIN [Suspect]
     Active Substance: BLEOMYCIN SULFATE
     Dosage: 15 TH DAY OF 2ND COURSE OF BEP
     Route: 041
     Dates: start: 20170102, end: 20170102
  48. NEORAL [Suspect]
     Active Substance: CYCLOSPORINE
     Dosage: DOSE INCREASED
     Route: 065
     Dates: start: 20170227
  49. MORPHINE HYDROCHLORIDE HYDRATE [Suspect]
     Active Substance: MORPHINE HYDROCHLORIDE
     Indication: DYSPNOEA
     Dosage: CONTINUOUS INFUSION
     Route: 065
     Dates: start: 20170303
  50. NEXIUM [Concomitant]
     Active Substance: ESOMEPRAZOLE MAGNESIUM
     Indication: PRODUCT USED FOR UNKNOWN INDICATION
     Route: 048

REACTIONS (1)
  - Interstitial lung disease [Fatal]

NARRATIVE: CASE EVENT DATE: 20170214
